APPROVED DRUG PRODUCT: SIROLIMUS
Active Ingredient: SIROLIMUS
Strength: 2MG
Dosage Form/Route: TABLET;ORAL
Application: A201578 | Product #002 | TE Code: AB
Applicant: DR REDDYS LABORATORIES LTD
Approved: Oct 27, 2014 | RLD: No | RS: No | Type: RX